FAERS Safety Report 19727639 (Version 1)
Quarter: 2021Q3

REPORT INFORMATION
  Report Type: Report from Study
  Country: None (occurrence: US)
  Receive Date: 20210819
  Receipt Date: 20210819
  Transmission Date: 20211014
  Serious: Yes (Hospitalization)
  Sender: FDA-Public Use
  Company Number: US-ABBVIE-21K-163-4044677-00

PATIENT
  Sex: Male

DRUGS (2)
  1. IMBRUVICA [Suspect]
     Active Substance: IBRUTINIB
     Indication: CHRONIC LEUKAEMIA
     Route: 048
     Dates: start: 202106
  2. IMBRUVICA [Suspect]
     Active Substance: IBRUTINIB
     Indication: CHRONIC LEUKAEMIA
     Route: 048
     Dates: start: 201805, end: 202105

REACTIONS (1)
  - Nephrolithiasis [Unknown]

NARRATIVE: CASE EVENT DATE: 2021
